FAERS Safety Report 8277890-8 (Version None)
Quarter: 2012Q2

REPORT INFORMATION
  Report Type: 
  Country: None (occurrence: None)
  Receive Date: 20120412
  Receipt Date: 20120402
  Transmission Date: 20120825
  Serious: Yes (Hospitalization, Other)
  Sender: FDA-Public Use
  Company Number: CA-ELI_LILLY_AND_COMPANY-CA201112007688

PATIENT
  Age: 69 Year
  Sex: Female

DRUGS (17)
  1. VERAPAMIL [Concomitant]
  2. DICLOFENAC SODIUM [Concomitant]
  3. FORTEO [Suspect]
     Dosage: 20 UG, QD
     Route: 058
     Dates: start: 20111223
  4. ATORVASTATIN [Concomitant]
  5. FUROSEMIDE [Concomitant]
  6. SYMBICORT [Concomitant]
  7. RYTHMOL [Concomitant]
  8. METFORMIN HCL [Concomitant]
  9. PRADAXA [Concomitant]
  10. SYNTHROID [Concomitant]
  11. OMEPRAZOLE [Concomitant]
  12. GLICLAZIDE [Concomitant]
  13. FORTEO [Suspect]
     Indication: OSTEOPOROSIS
     Dosage: 20 UG, QD
     Route: 058
     Dates: start: 20111028, end: 20111218
  14. PREDNISONE TAB [Concomitant]
  15. FOSAMAX [Concomitant]
  16. VITAMIN D [Concomitant]
  17. CALCIUM CARBONATE [Concomitant]

REACTIONS (2)
  - CARDIOPULMONARY FAILURE [None]
  - ASTHMA [None]
